FAERS Safety Report 7998413-4 (Version None)
Quarter: 2011Q4

REPORT INFORMATION
  Report Type: 
  Country: None (occurrence: None)
  Receive Date: 20111221
  Receipt Date: 20111005
  Transmission Date: 20120403
  Serious: No
  Sender: FDA-Public Use
  Company Number: US-GLAXOSMITHKLINE-A0947549A

PATIENT
  Age: 82 Year
  Sex: Female

DRUGS (8)
  1. CALTRATE WITH D [Concomitant]
  2. SENNA [Concomitant]
     Indication: DIARRHOEA
  3. COUMADIN [Concomitant]
  4. LOVAZA [Suspect]
     Indication: BLOOD CHOLESTEROL INCREASED
     Dosage: 2CAP PER DAY
     Route: 048
     Dates: start: 20100101
  5. TOPROL-XL [Concomitant]
  6. VITAMIN D [Concomitant]
  7. CENTRUM SILVER [Concomitant]
  8. ACETAMINOPHEN [Concomitant]

REACTIONS (1)
  - DRUG INEFFECTIVE [None]
